FAERS Safety Report 6050287-7 (Version None)
Quarter: 2009Q1

REPORT INFORMATION
  Report Type: 
  Country: None (occurrence: None)
  Receive Date: 20090126
  Receipt Date: 20090115
  Transmission Date: 20090719
  Serious: Yes (Hospitalization)
  Sender: FDA-Public Use
  Company Number: US-AMGEN-QUU328599

PATIENT
  Sex: Female

DRUGS (1)
  1. ENBREL [Suspect]
     Indication: RHEUMATOID ARTHRITIS
     Route: 058
     Dates: start: 20000626

REACTIONS (5)
  - ARTHRALGIA [None]
  - ARTHRITIS [None]
  - DEVICE FAILURE [None]
  - GAIT DISTURBANCE [None]
  - JOINT SWELLING [None]
